FAERS Safety Report 5801955-0 (Version None)
Quarter: 2008Q3

REPORT INFORMATION
  Report Type: 
  Country: None (occurrence: None)
  Receive Date: 20080707
  Receipt Date: 20080702
  Transmission Date: 20090109
  Serious: Yes (Hospitalization)
  Sender: FDA-Public Use
  Company Number: US-ASTRAZENECA-2008UW07844

PATIENT
  Age: 24 Year
  Sex: Male
  Weight: 263 kg

DRUGS (6)
  1. SEROQUEL [Suspect]
     Indication: PSYCHOTIC DISORDER
     Route: 048
     Dates: start: 20060801, end: 20071201
  2. SEROQUEL [Suspect]
     Route: 048
     Dates: start: 20080423
  3. RISPERDAL [Concomitant]
     Indication: SCHIZOPHRENIA
     Dates: start: 20060801
  4. DEPAKOTE [Concomitant]
     Dosage: 500 MG 1 QAM AND 2 QHS
     Dates: start: 20060901
  5. CLOZARIL [Concomitant]
     Dosage: FOR 2 TO 3 YEARS
  6. ABILIFY [Concomitant]

REACTIONS (3)
  - DIABETIC COMA [None]
  - KETOACIDOSIS [None]
  - WEIGHT INCREASED [None]
